FAERS Safety Report 5941616-0 (Version None)
Quarter: 2008Q4

REPORT INFORMATION
  Report Type: 
  Country: None (occurrence: None)
  Receive Date: 20081104
  Receipt Date: 20081104
  Transmission Date: 20090506
  Serious: Yes (Life-Threatening, Hospitalization)
  Sender: FDA-Public Use
  Company Number: None

PATIENT
  Age: 76 Year
  Sex: Female
  Weight: 65 kg

DRUGS (1)
  1. TPA -ALTEPLASE- 50 MG [Suspect]
     Indication: THROMBOSIS
     Dosage: 9 MG ONCE INTRA-ARTERIAL ONE DOSE
     Route: 013
     Dates: start: 20081018, end: 20081018

REACTIONS (8)
  - AGGRESSION [None]
  - BLOOD PRESSURE INCREASED [None]
  - CONFUSIONAL STATE [None]
  - HAEMORRHAGE INTRACRANIAL [None]
  - INTRAVENTRICULAR HAEMORRHAGE [None]
  - LETHARGY [None]
  - MENTAL STATUS CHANGES [None]
  - UNRESPONSIVE TO STIMULI [None]
